FAERS Safety Report 5317058-8 (Version None)
Quarter: 2007Q2

REPORT INFORMATION
  Report Type: 
  Country: None (occurrence: None)
  Receive Date: 20070504
  Receipt Date: 20070426
  Transmission Date: 20071010
  Serious: Yes (Hospitalization)
  Sender: FDA-Public Use
  Company Number: US-ROCHE-495111

PATIENT
  Age: 39 Year
  Sex: Male
  Weight: 102.1 kg

DRUGS (4)
  1. PEGASYS [Suspect]
     Route: 065
     Dates: start: 20061001, end: 20070101
  2. RIBAVIRIN [Suspect]
     Route: 065
     Dates: start: 20061001, end: 20070101
  3. MUSCLE RELAXANTS [Concomitant]
  4. UNSPECIFIED MEDICATION [Concomitant]
     Dosage: THE PATIENT WAS TAKING UNSPECIFIED PAIN MEDICATION.

REACTIONS (2)
  - PRURITUS [None]
  - VARICES OESOPHAGEAL [None]
